FAERS Safety Report 12289474 (Version 1)
Quarter: 2016Q2

REPORT INFORMATION
  Report Type: Spontaneous
  Country: US (occurrence: None)
  Receive Date: 20160420
  Receipt Date: 20160420
  Transmission Date: 20160815
  Serious: Yes (Life-Threatening, Hospitalization)
  Sender: FDA-Public Use
  Company Number: None

PATIENT
  Age: 7 Year

DRUGS (1)
  1. PHENYTOIN 125MG/5ML [Suspect]
     Active Substance: PHENYTOIN SODIUM
     Indication: EPILEPSY
     Dosage: 2.2 ML TID G-TUBE
     Dates: start: 201403, end: 201604

REACTIONS (1)
  - Status epilepticus [None]

NARRATIVE: CASE EVENT DATE: 20160415
